FAERS Safety Report 12681437 (Version 1)
Quarter: 2016Q3

REPORT INFORMATION
  Report Type: Report from Study
  Country: AU (occurrence: AU)
  Receive Date: 20160824
  Receipt Date: 20160824
  Transmission Date: 20161109
  Serious: Yes (Hospitalization)
  Sender: FDA-Public Use
  Company Number: PHHO2012AU002438

PATIENT
  Age: 51 Year
  Sex: Female
  Weight: 64.3 kg

DRUGS (5)
  1. AFINITOR [Suspect]
     Active Substance: EVEROLIMUS
     Indication: BREAST CANCER METASTATIC
     Dosage: 5 MG, QD
     Route: 048
     Dates: start: 20120128, end: 20120202
  2. COMPARATOR TRASTUZUMAB [Suspect]
     Active Substance: TRASTUZUMAB
     Indication: BREAST CANCER METASTATIC
     Dosage: 128 MG, QWK
     Route: 042
     Dates: start: 20120127
  3. COMPARATOR VINORELBINE [Suspect]
     Active Substance: VINORELBINE TARTRATE
     Indication: BREAST CANCER METASTATIC
     Dosage: 32 MG, UNK
     Route: 042
     Dates: start: 20120127, end: 20120202
  4. COMPARATOR VINORELBINE [Suspect]
     Active Substance: VINORELBINE TARTRATE
     Dosage: 32 MG, UNK
     Route: 042
     Dates: start: 20120223
  5. AFINITOR [Suspect]
     Active Substance: EVEROLIMUS
     Dosage: 5 MG, QD
     Route: 048
     Dates: start: 20120220

REACTIONS (2)
  - Febrile neutropenia [Recovered/Resolved]
  - Mucosal inflammation [Recovering/Resolving]

NARRATIVE: CASE EVENT DATE: 20120206
